FAERS Safety Report 18639637 (Version 1)
Quarter: 2020Q4

REPORT INFORMATION
  Report Type: Spontaneous
  Country: US (occurrence: US)
  Receive Date: 20201220
  Receipt Date: 20201220
  Transmission Date: 20210114
  Serious: No
  Sender: FDA-Public Use
  Company Number: US-LUPIN PHARMACEUTICALS INC.-2020-08396

PATIENT
  Age: 62 Year
  Sex: Female

DRUGS (2)
  1. TRIAMCINOLONE [Suspect]
     Active Substance: TRIAMCINOLONE
     Indication: DISORDER OF ORBIT
  2. TRIAMCINOLONE [Suspect]
     Active Substance: TRIAMCINOLONE
     Indication: SCAR
     Dosage: 0.3 ML OF 20 MG/ML TRIAMCINOLONE WAS INJECTED UNDER LOW PRESSURE WITH A 25-GAUGE NEEDLE RETROGRADELY
     Route: 026

REACTIONS (1)
  - Skin atrophy [Recovering/Resolving]
